APPROVED DRUG PRODUCT: MAPROTILINE HYDROCHLORIDE
Active Ingredient: MAPROTILINE HYDROCHLORIDE
Strength: 75MG
Dosage Form/Route: TABLET;ORAL
Application: A072164 | Product #001
Applicant: WATSON LABORATORIES INC
Approved: Jun 1, 1988 | RLD: No | RS: No | Type: DISCN